FAERS Safety Report 4830079-4 (Version None)
Quarter: 2005Q4

REPORT INFORMATION
  Report Type: 
  Country: None (occurrence: None)
  Receive Date: 20051114
  Receipt Date: 20051101
  Transmission Date: 20060501
  Serious: Yes (Disabling)
  Sender: FDA-Public Use
  Company Number: JP_051108055

PATIENT
  Age: 37 Year
  Sex: Male

DRUGS (1)
  1. ZYPREXA [Suspect]
     Indication: SCHIZOPHRENIA
     Dosage: 5 MG DAY
     Dates: start: 20050804

REACTIONS (6)
  - ANXIETY [None]
  - GAIT DISTURBANCE [None]
  - INSOMNIA [None]
  - MOVEMENT DISORDER [None]
  - PERONEAL NERVE PALSY [None]
  - SOMNOLENCE [None]
